FAERS Safety Report 7108213-5 (Version None)
Quarter: 2010Q4

REPORT INFORMATION
  Report Type: 
  Country: None (occurrence: None)
  Receive Date: 20101117
  Receipt Date: 20101103
  Transmission Date: 20110411
  Serious: Yes (Other)
  Sender: FDA-Public Use
  Company Number: PHHY2010AU31463

PATIENT
  Sex: Female

DRUGS (5)
  1. EXFORGE [Suspect]
     Dosage: 1 TABLET DAILY
     Route: 048
     Dates: start: 20080601, end: 20100419
  2. BETALOC [Concomitant]
  3. LIPITOR [Concomitant]
     Indication: HYPERCHOLESTEROLAEMIA
  4. COVERSYL [Concomitant]
     Indication: HYPERTENSION
  5. ANTIHYPERTENSIVES [Concomitant]

REACTIONS (4)
  - CHEST DISCOMFORT [None]
  - DYSPNOEA [None]
  - MYOCARDIAL INFARCTION [None]
  - STENT PLACEMENT [None]
